FAERS Safety Report 6790980-1 (Version None)
Quarter: 2010Q2

REPORT INFORMATION
  Report Type: 
  Country: None (occurrence: None)
  Receive Date: 20100624
  Receipt Date: 20100616
  Transmission Date: 20101027
  Serious: Yes (Life-Threatening, Hospitalization)
  Sender: FDA-Public Use
  Company Number: JP-MERCK-1005USA01321

PATIENT
  Age: 69 Year
  Sex: Male

DRUGS (7)
  1. HYZAAR [Suspect]
     Indication: HYPERTENSION
     Route: 048
     Dates: end: 20100430
  2. ALDACTONE [Suspect]
     Indication: CARDIAC FAILURE
     Route: 048
     Dates: start: 20100320, end: 20100430
  3. ALOSITOL [Suspect]
     Indication: HYPERURICAEMIA
     Route: 048
     Dates: end: 20100430
  4. DIART [Concomitant]
     Indication: CARDIAC FAILURE
     Route: 048
     Dates: end: 20100430
  5. ARTIST [Concomitant]
     Indication: CARDIAC FAILURE
     Route: 048
     Dates: end: 20100430
  6. DIGOXIN [Concomitant]
     Indication: CARDIAC FAILURE
     Route: 048
     Dates: end: 20100430
  7. WARFARIN POTASSIUM [Concomitant]
     Indication: ATRIAL FIBRILLATION
     Route: 048
     Dates: end: 20100430

REACTIONS (4)
  - CARDIAC FAILURE [None]
  - HYPERKALAEMIA [None]
  - RENAL FAILURE [None]
  - SINUS ARREST [None]
